FAERS Safety Report 9173231 (Version 1)
Quarter: 2013Q1

REPORT INFORMATION
  Report Type: Spontaneous
  Country: US (occurrence: None)
  Receive Date: 20130315
  Receipt Date: 20130315
  Transmission Date: 20140127
  Serious: Yes (Hospitalization)
  Sender: FDA-Public Use
  Company Number: UTC-030052

PATIENT
  Age: 70 Year
  Sex: Female
  Weight: 89.27 kg

DRUGS (2)
  1. TYVASO [Suspect]
     Indication: PULMONARY ARTERIAL HYPERTENSION
     Dosage: 18 TO 54 MICROGRAMS ( 4 IN 1 D), INHALATION
     Route: 055
     Dates: start: 20130218, end: 20130226
  2. REVATIO (SILDENAFIL CITRATE) (UNKNOWN) (SILDENAFIL) [Concomitant]

REACTIONS (3)
  - Transient ischaemic attack [None]
  - Hypotension [None]
  - Hypoxia [None]
